FAERS Safety Report 8249450-6 (Version None)
Quarter: 2012Q1

REPORT INFORMATION
  Report Type: 
  Country: None (occurrence: None)
  Receive Date: 20120327
  Receipt Date: 20120306
  Transmission Date: 20120608
  Serious: Yes (Hospitalization, Other)
  Sender: FDA-Public Use
  Company Number: 2012PROUSA00934

PATIENT
  Age: 66 Year
  Sex: Male
  Weight: 102 kg

DRUGS (7)
  1. PROVENGE [Suspect]
  2. PROVENGE [Suspect]
     Indication: PROSTATE CANCER METASTATIC
     Dosage: 250 ML, SINGLE, INTRAVENOUS
     Route: 042
     Dates: start: 20111027, end: 20111027
  3. PROVENGE [Suspect]
     Indication: PROSTATE CANCER METASTATIC
     Dosage: 250 ML, SINGLE, INTRAVENOUS
     Route: 042
     Dates: start: 20111110, end: 20111110
  4. PROVENGE [Suspect]
     Indication: PROSTATE CANCER METASTATIC
     Dosage: 250 ML, SINGLE, INTRAVENOUS
     Route: 042
     Dates: start: 20111112, end: 20111212
  5. GLIPIZIDE [Concomitant]
  6. PROVENGE [Suspect]
  7. COUMADIN [Concomitant]

REACTIONS (9)
  - FLUID OVERLOAD [None]
  - CHILLS [None]
  - PLATELET COUNT DECREASED [None]
  - DISEASE PROGRESSION [None]
  - CHOLELITHIASIS [None]
  - OBSTRUCTION GASTRIC [None]
  - PLEURAL EFFUSION [None]
  - PYREXIA [None]
  - OEDEMA PERIPHERAL [None]
